FAERS Safety Report 10246888 (Version 1)
Quarter: 2014Q2

REPORT INFORMATION
  Report Type: Spontaneous
  Country: FR (occurrence: FR)
  Receive Date: 20140619
  Receipt Date: 20140619
  Transmission Date: 20141212
  Serious: Yes (Hospitalization)
  Sender: FDA-Public Use
  Company Number: FR-NOVOPROD-413450

PATIENT
  Age: 64 Year
  Sex: Female

DRUGS (5)
  1. VICTOZA [Suspect]
     Indication: TYPE 2 DIABETES MELLITUS
     Dosage: 1.2 MG, QD
     Route: 058
     Dates: end: 20140512
  2. SIMVASTATINE [Concomitant]
     Dosage: UNK
     Route: 065
  3. LUMIGAN [Concomitant]
     Dosage: UNK
     Route: 065
  4. MATRIFEN [Concomitant]
     Dosage: UNK
     Route: 065
  5. RAMIPRIL [Concomitant]
     Dosage: UNK
     Route: 065

REACTIONS (2)
  - Epilepsy [Recovered/Resolved]
  - Hypoglycaemia [Recovered/Resolved]
